FAERS Safety Report 14917924 (Version 2)
Quarter: 2018Q2

REPORT INFORMATION
  Report Type: Spontaneous
  Country: CN (occurrence: CN)
  Receive Date: 20180521
  Receipt Date: 20180525
  Transmission Date: 20180711
  Serious: Yes (Other)
  Sender: FDA-Public Use
  Company Number: CN-B.I. PHARMACEUTICALS,INC./RIDGEFIELD-2018-BI-026621

PATIENT
  Sex: Male
  Weight: 60 kg

DRUGS (5)
  1. SIFROL [Suspect]
     Active Substance: PRAMIPEXOLE
     Route: 048
  2. MADOPAR [Concomitant]
     Active Substance: BENSERAZIDE HYDROCHLORIDE\LEVODOPA
     Indication: PARKINSON^S DISEASE
     Dosage: TAKEN AT ABOUT 7:00, 12:00 AND 17:00 HOURS
     Route: 048
  3. SINEMET [Concomitant]
     Active Substance: CARBIDOPA\LEVODOPA
     Indication: PARKINSON^S DISEASE
     Dosage: CONTROLLED RELEASE TABLET; TAKEN AT ABOUT 7:00, 12:00 AND 17:00 HOURS
     Route: 048
  4. SIFROL [Suspect]
     Active Substance: PRAMIPEXOLE
     Indication: PARKINSON^S DISEASE
     Dosage: TAKEN AT ABOUT 7:00, 12:00 AND 17:00 HOURS
     Route: 048
  5. SIFROL [Suspect]
     Active Substance: PRAMIPEXOLE
     Route: 048

REACTIONS (2)
  - Asphyxia [Recovered/Resolved]
  - Chest discomfort [Recovered/Resolved]
